FAERS Safety Report 6203772-9 (Version None)
Quarter: 2009Q2

REPORT INFORMATION
  Report Type: 
  Country: None (occurrence: None)
  Receive Date: 20090526
  Receipt Date: 20090526
  Transmission Date: 20091009
  Serious: Yes (Hospitalization)
  Sender: FDA-Public Use
  Company Number: None

PATIENT
  Age: 43 Year
  Sex: Female
  Weight: 148 kg

DRUGS (24)
  1. BYETTA [Suspect]
     Indication: TYPE 2 DIABETES MELLITUS
     Dosage: 10MCG TWICE DAILY SQ
     Route: 058
     Dates: start: 20080101, end: 20090522
  2. JANUVIA [Concomitant]
  3. AVANDARYL [Concomitant]
  4. PLAVIX [Concomitant]
  5. COREG [Concomitant]
  6. FLORINEF [Concomitant]
  7. GLUCOVANCE [Concomitant]
  8. BUMEX [Concomitant]
  9. REGLAN [Concomitant]
  10. ATARAX [Concomitant]
  11. LYRICA [Concomitant]
  12. CLARITIN [Concomitant]
  13. ALLEGRA [Concomitant]
  14. PHENERGAN [Concomitant]
  15. COZAAR [Concomitant]
  16. CEPHADYN [Concomitant]
  17. PROTONIX [Concomitant]
  18. DYAZIDE [Concomitant]
  19. LORTAB [Concomitant]
  20. CATAPES [Concomitant]
  21. TRICOR [Concomitant]
  22. NITROGLYCERIN SL [Concomitant]
  23. ROBAXIN NEURONTIN [Concomitant]
  24. RENA-VITE [Concomitant]

REACTIONS (1)
  - PANCREATITIS [None]
